FAERS Safety Report 26212577 (Version 1)
Quarter: 2025Q4

REPORT INFORMATION
  Report Type: Spontaneous
  Country: US (occurrence: US)
  Receive Date: 20251230
  Receipt Date: 20251230
  Transmission Date: 20260118
  Serious: No
  Sender: ROCHE
  Company Number: US-ROCHE-10000467055

PATIENT
  Sex: Female
  Weight: 76 kg

DRUGS (1)
  1. XOLAIR PFS [Suspect]
     Active Substance: OMALIZUMAB
     Indication: Idiopathic urticaria

REACTIONS (4)
  - Dermatitis atopic [Unknown]
  - Injection site pruritus [Unknown]
  - Injection site erythema [Unknown]
  - Idiopathic urticaria [Unknown]
